FAERS Safety Report 6834853-4 (Version None)
Quarter: 2010Q3

REPORT INFORMATION
  Report Type: 
  Country: None (occurrence: None)
  Receive Date: 20100712
  Receipt Date: 20070814
  Transmission Date: 20110219
  Serious: No
  Sender: FDA-Public Use
  Company Number: US-PFIZER INC-2007034160

PATIENT
  Sex: Female
  Weight: 61.23 kg

DRUGS (6)
  1. CHANTIX [Suspect]
     Indication: SMOKING CESSATION THERAPY
     Dates: start: 20070101, end: 20070101
  2. ANTIBIOTICS [Suspect]
  3. VYTORIN [Concomitant]
  4. TOPROL-XL [Concomitant]
  5. ZOLOFT [Concomitant]
  6. VICODIN [Concomitant]
     Indication: PAIN

REACTIONS (2)
  - ABDOMINAL DISTENSION [None]
  - NAUSEA [None]
